FAERS Safety Report 7323030-9 (Version None)
Quarter: 2011Q1

REPORT INFORMATION
  Report Type: 
  Country: None (occurrence: None)
  Receive Date: 20110301
  Receipt Date: 20110225
  Transmission Date: 20110831
  Serious: Yes (Life-Threatening, Other)
  Sender: FDA-Public Use
  Company Number: PHHY2011JP04542

PATIENT
  Sex: Female
  Weight: 60 kg

DRUGS (4)
  1. DIOVAN [Suspect]
     Indication: HYPERTENSION
     Dosage: 40 MG, UNK
     Route: 048
     Dates: start: 20110107, end: 20110112
  2. CALONAL [Concomitant]
     Indication: PYREXIA
     Dosage: UNK
     Route: 048
     Dates: start: 20110110
  3. ZOSYN [Concomitant]
     Dosage: UNK
     Dates: start: 20110110
  4. ACETAMINOPHEN [Suspect]

REACTIONS (4)
  - PYREXIA [None]
  - SEPSIS [None]
  - PANCYTOPENIA [None]
  - LIVER FUNCTION TEST ABNORMAL [None]
